APPROVED DRUG PRODUCT: APREPITANT
Active Ingredient: APREPITANT
Strength: 40MG
Dosage Form/Route: CAPSULE;ORAL
Application: A207777 | Product #001 | TE Code: AB
Applicant: GLENMARK SPECIALTY SA
Approved: Oct 12, 2017 | RLD: No | RS: No | Type: RX